FAERS Safety Report 9871846 (Version 1)
Quarter: 2014Q1

REPORT INFORMATION
  Report Type: Spontaneous
  Country: FR (occurrence: FR)
  Receive Date: 20140205
  Receipt Date: 20140205
  Transmission Date: 20141002
  Serious: Yes (Hospitalization)
  Sender: FDA-Public Use
  Company Number: FR-B.I. PHARMACEUTICALS,INC./RIDGEFIELD-2014-BI-04124FF

PATIENT
  Age: 63 Year
  Sex: Male

DRUGS (6)
  1. PRADAXA [Suspect]
     Indication: PULMONARY EMBOLISM
     Dosage: 300 MG
     Route: 048
  2. VALIUM PERFUSION [Concomitant]
     Indication: ALCOHOL WITHDRAWAL SYNDROME
  3. VITAMIN B1/B6 [Concomitant]
  4. ACEBUTOLOL [Concomitant]
     Dosage: 200 MG
  5. PERINDOPRIL [Concomitant]
     Dosage: 4 MG
  6. ALLOPURINOL 100MG [Concomitant]

REACTIONS (1)
  - Epilepsy [Unknown]
